FAERS Safety Report 23977133 (Version 1)
Quarter: 2024Q2

REPORT INFORMATION
  Report Type: Report from Study
  Country: FR (occurrence: FR)
  Receive Date: 20240614
  Receipt Date: 20240614
  Transmission Date: 20240715
  Serious: Yes (Hospitalization)
  Sender: FDA-Public Use
  Company Number: FR-ROCHE-3568814

PATIENT
  Age: 57 Year
  Sex: Male
  Weight: 74.5 kg

DRUGS (28)
  1. PREDNISONE [Suspect]
     Active Substance: PREDNISONE
     Indication: Richter^s syndrome
     Dosage: 60 MILLIGRAM/SQ. METER
     Route: 048
     Dates: start: 20240330
  2. PREDNISONE [Suspect]
     Active Substance: PREDNISONE
     Dosage: C1D5
     Route: 048
     Dates: start: 20240403
  3. PREDNISONE [Suspect]
     Active Substance: PREDNISONE
     Dosage: UNK, C2D5
     Route: 048
     Dates: start: 20240422
  4. PREDNISONE [Suspect]
     Active Substance: PREDNISONE
     Dosage: UNK, C2D5
     Route: 048
     Dates: start: 20240426
  5. GLOFITAMAB [Suspect]
     Active Substance: GLOFITAMAB
     Indication: Richter^s syndrome
     Dosage: 2.5 MILLIGRAM, C2D28
     Route: 042
     Dates: start: 20240330
  6. GLOFITAMAB [Suspect]
     Active Substance: GLOFITAMAB
     Dosage: UNK
     Route: 042
     Dates: start: 20240501
  7. GLOFITAMAB [Suspect]
     Active Substance: GLOFITAMAB
     Dosage: UNK, C2D28
     Route: 042
     Dates: start: 20240504
  8. DOXORUBICIN [Suspect]
     Active Substance: DOXORUBICIN
     Indication: Richter^s syndrome
     Dosage: 50 MILLIGRAM/SQ. METER, C1D1
     Route: 042
     Dates: start: 20240330, end: 20240403
  9. DOXORUBICIN [Suspect]
     Active Substance: DOXORUBICIN
     Dosage: UNK, C1D5
     Route: 042
     Dates: start: 20240403
  10. DOXORUBICIN [Suspect]
     Active Substance: DOXORUBICIN
     Dosage: UNK, C2D5
     Route: 042
     Dates: start: 20240422, end: 20240426
  11. DOXORUBICIN [Suspect]
     Active Substance: DOXORUBICIN
     Dosage: UNK, C2D5
     Route: 042
     Dates: start: 20240426
  12. RITUXIMAB [Suspect]
     Active Substance: RITUXIMAB
     Indication: Richter^s syndrome
     Dosage: 375 MILLIGRAM/SQ. METER, CYCLE 1 DAY 1, AS PER PROTOCOL
     Route: 042
     Dates: start: 20240330, end: 20240403
  13. RITUXIMAB [Suspect]
     Active Substance: RITUXIMAB
     Dosage: UNK UNK, CYCLE
     Route: 042
     Dates: start: 20240503
  14. CYCLOPHOSPHAMIDE [Suspect]
     Active Substance: CYCLOPHOSPHAMIDE
     Indication: Richter^s syndrome
     Dosage: 750 MILLIGRAM/SQ. METER, C1D1
     Route: 042
     Dates: start: 20240330, end: 20240403
  15. CYCLOPHOSPHAMIDE [Suspect]
     Active Substance: CYCLOPHOSPHAMIDE
     Dosage: UNK, C1 D5
     Route: 042
     Dates: start: 20240403
  16. CYCLOPHOSPHAMIDE [Suspect]
     Active Substance: CYCLOPHOSPHAMIDE
     Dosage: UNK, C2 D5
     Route: 042
     Dates: start: 20240422, end: 20240426
  17. CYCLOPHOSPHAMIDE [Suspect]
     Active Substance: CYCLOPHOSPHAMIDE
     Dosage: UNK, C2 D5
     Route: 042
     Dates: start: 20240426
  18. OBINUTUZUMAB [Suspect]
     Active Substance: OBINUTUZUMAB
     Indication: Richter^s syndrome
     Dosage: 1000 MILLIGRAM, SINGLE DOSE C2D1
     Route: 042
     Dates: start: 20240422
  19. VINCRISTINE [Suspect]
     Active Substance: VINCRISTINE
     Indication: Richter^s syndrome
     Dosage: 1.4 MILLIGRAM/SQ. METER, C1D1
     Route: 042
     Dates: start: 20240330, end: 20240403
  20. VINCRISTINE [Suspect]
     Active Substance: VINCRISTINE
     Dosage: UNK
     Route: 042
     Dates: start: 20240403
  21. VINCRISTINE [Suspect]
     Active Substance: VINCRISTINE
     Dosage: UNK, C2D5
     Route: 042
     Dates: start: 20240422, end: 20240426
  22. VINCRISTINE [Suspect]
     Active Substance: VINCRISTINE
     Dosage: UNK,C2D5
     Route: 042
     Dates: start: 20240426
  23. EMEND [Concomitant]
     Active Substance: APREPITANT
     Dosage: 125 MILLIGRAM
     Route: 065
  24. SODIUM BICARBONATE [Concomitant]
     Active Substance: SODIUM BICARBONATE
     Dosage: UNK, TID
     Route: 065
  25. SOTALOL [Concomitant]
     Active Substance: SOTALOL
     Dosage: 80 MILLIGRAM, BID
     Route: 065
  26. BACTRIM [Concomitant]
     Active Substance: SULFAMETHOXAZOLE\TRIMETHOPRIM
     Dosage: 800 MILLIGRAM, TID
     Route: 065
     Dates: start: 20240330
  27. ONDANSETRON [Concomitant]
     Active Substance: ONDANSETRON
     Dosage: 8 MILLIGRAM, BID
     Route: 065
  28. VALACYCLOVIR HYDROCHLORIDE [Concomitant]
     Active Substance: VALACYCLOVIR HYDROCHLORIDE
     Dosage: 500 MILLIGRAM, BID
     Route: 065
     Dates: start: 20240330

REACTIONS (1)
  - Cytokine release syndrome [Not Recovered/Not Resolved]

NARRATIVE: CASE EVENT DATE: 20240504
